FAERS Safety Report 19179686 (Version 2)
Quarter: 2021Q2

REPORT INFORMATION
  Report Type: Spontaneous
  Country: US (occurrence: US)
  Receive Date: 20210426
  Receipt Date: 20210429
  Transmission Date: 20210717
  Serious: No
  Sender: FDA-Public Use
  Company Number: US-ASTRAZENECA-2021A329544

PATIENT
  Sex: Female
  Weight: 125.6 kg

DRUGS (1)
  1. BYDUREON BCISE [Suspect]
     Active Substance: EXENATIDE
     Indication: BLOOD GLUCOSE ABNORMAL
     Route: 058
     Dates: start: 202102

REACTIONS (6)
  - Product dose omission issue [Unknown]
  - Device delivery system issue [Unknown]
  - Thyroiditis [Unknown]
  - Injection site nodule [Unknown]
  - Injection site bruising [Unknown]
  - Drug dose omission by device [Unknown]
